FAERS Safety Report 7311668-4 (Version None)
Quarter: 2011Q1

REPORT INFORMATION
  Report Type: 
  Country: None (occurrence: None)
  Receive Date: 20110224
  Receipt Date: 20110211
  Transmission Date: 20110831
  Serious: Yes (Hospitalization, Other)
  Sender: FDA-Public Use
  Company Number: US-ELI_LILLY_AND_COMPANY-US201101006115

PATIENT
  Sex: Male
  Weight: 102.4 kg

DRUGS (8)
  1. SPIRONOLACTONE [Concomitant]
     Indication: HYPERTENSION
     Dosage: 25 MG, DAILY (1/D)
     Route: 048
  2. LABETALOL HCL [Concomitant]
     Indication: HYPERTENSION
     Dosage: 800 MG, 2/D
     Route: 048
  3. PRASUGREL HYDROCHLORIDE [Suspect]
     Dosage: 10 MG, DAILY (1/D)
  4. ASPIRIN [Concomitant]
     Dosage: 325 MG, DAILY (1/D)
     Route: 048
  5. ASPIRIN [Concomitant]
     Dosage: 81 MG, DAILY (1/D)
  6. CLONIDINE [Concomitant]
     Indication: HYPERTENSION
     Dosage: 0.4 MG, 2/D
     Route: 048
  7. PRASUGREL HYDROCHLORIDE [Suspect]
     Indication: ACUTE CORONARY SYNDROME
     Dosage: 60 MG, ONCE
     Dates: start: 20100428, end: 20100428
  8. MINOXIDIL [Concomitant]
     Indication: HYPERTENSION
     Dosage: 2.5 MG, DAILY (1/D)
     Route: 048

REACTIONS (1)
  - ANGINA PECTORIS [None]
